FAERS Safety Report 6657109-1 (Version None)
Quarter: 2010Q1

REPORT INFORMATION
  Report Type: 
  Country: None (occurrence: None)
  Receive Date: 20100330
  Receipt Date: 20100319
  Transmission Date: 20100710
  Serious: Yes (Other)
  Sender: FDA-Public Use
  Company Number: US-JNJFOC-20100301472

PATIENT
  Sex: Female
  Weight: 40.37 kg

DRUGS (16)
  1. FENTANYL-100 [Suspect]
     Indication: PAIN
     Route: 062
  2. FENTANYL-100 [Suspect]
     Route: 062
  3. FENTANYL-100 [Suspect]
     Indication: BACK PAIN
     Route: 062
  4. FENTANYL-100 [Suspect]
     Route: 062
  5. FENTANYL-100 [Suspect]
     Indication: CHEST PAIN
     Route: 062
  6. FENTANYL-100 [Suspect]
     Route: 062
  7. DURAGESIC-100 [Suspect]
     Indication: BACK PAIN
     Route: 062
  8. DURAGESIC-100 [Suspect]
     Indication: CHEST PAIN
     Route: 062
  9. MORPHINE SULFATE [Suspect]
     Indication: BACK PAIN
     Route: 048
  10. MORPHINE SULFATE [Suspect]
     Indication: CHEST PAIN
     Route: 048
  11. FENTANYL-100 [Suspect]
     Route: 062
  12. FENTANYL-100 [Suspect]
     Route: 062
  13. FENTANYL-100 [Suspect]
     Route: 062
  14. ROXICET [Concomitant]
     Indication: BREAKTHROUGH PAIN
     Dosage: 325 MG-5 MG
     Route: 048
  15. DIAZEPAM [Concomitant]
     Indication: ANXIETY
     Route: 048
  16. DIAZEPAM [Concomitant]
     Indication: NEUROPATHY PERIPHERAL
     Route: 048

REACTIONS (16)
  - APPLICATION SITE IRRITATION [None]
  - BONE PAIN [None]
  - BURNING SENSATION [None]
  - CHEST PAIN [None]
  - DEVICE LEAKAGE [None]
  - DIARRHOEA [None]
  - DRUG INEFFECTIVE [None]
  - EATING DISORDER [None]
  - FEELING ABNORMAL [None]
  - MALAISE [None]
  - PAIN [None]
  - RECTAL HAEMORRHAGE [None]
  - SKIN DISCOLOURATION [None]
  - THERAPEUTIC RESPONSE DECREASED [None]
  - VEIN DISORDER [None]
  - WRONG TECHNIQUE IN DRUG USAGE PROCESS [None]
